FAERS Safety Report 9667905 (Version 4)
Quarter: 2015Q1

REPORT INFORMATION
  Report Type: Spontaneous
  Country: US (occurrence: US)
  Receive Date: 20131104
  Receipt Date: 20150311
  Transmission Date: 20150721
  Serious: Yes (Hospitalization, Other)
  Sender: FDA-Public Use
  Company Number: US-MERCK-1310USA014358

PATIENT
  Sex: Female
  Weight: 77.98 kg

DRUGS (9)
  1. FOSAMAX [Suspect]
     Active Substance: ALENDRONATE SODIUM
     Indication: ARTHRITIS
     Dosage: 35 MG, QW
     Route: 048
     Dates: end: 201111
  2. GNC WOMENS ULTRA MEGA [Concomitant]
     Dosage: UNK
     Dates: start: 1990
  3. CENTRUM SILVER [Concomitant]
     Active Substance: VITAMINS
     Dosage: UNK
     Dates: start: 1990
  4. ALENDRONATE SODIUM. [Suspect]
     Active Substance: ALENDRONATE SODIUM
     Indication: ARTHRITIS
     Dosage: 35 MG, QW
     Route: 048
     Dates: start: 20080804, end: 201110
  5. ASCORBIC ACID. [Concomitant]
     Active Substance: ASCORBIC ACID
     Dosage: 2000 MG, UNK
     Dates: start: 1990
  6. OS-CAL (CALCIUM CARBONATE) [Concomitant]
     Dosage: 500 MG, UNK
     Dates: start: 1990
  7. FOSAMAX [Suspect]
     Active Substance: ALENDRONATE SODIUM
     Dosage: UNK
     Route: 048
     Dates: start: 200001
  8. FOSAMAX PLUS D [Suspect]
     Active Substance: ALENDRONATE SODIUM\CHOLECALCIFEROL
     Indication: ARTHRITIS
     Dosage: UNK MG, UNK
     Route: 048
     Dates: end: 200808
  9. GNC VITAMIN E [Concomitant]
     Dosage: 400 MG, UNK
     Dates: start: 1990

REACTIONS (17)
  - Open reduction of fracture [Unknown]
  - Osteoporosis [Unknown]
  - Radius fracture [Unknown]
  - Anaemia postoperative [Unknown]
  - Gastrooesophageal reflux disease [Unknown]
  - Tibia fracture [Unknown]
  - Device extrusion [Unknown]
  - Intramedullary rod insertion [Recovered/Resolved]
  - Pubis fracture [Recovering/Resolving]
  - Osteopenia [Unknown]
  - Bladder cancer [Unknown]
  - Internal fixation of fracture [Unknown]
  - Incorrect dose administered [Unknown]
  - Femur fracture [Recovered/Resolved]
  - Thyroid cancer [Unknown]
  - Medical device implantation [Unknown]
  - Off label use [Unknown]

NARRATIVE: CASE EVENT DATE: 20001207
